FAERS Safety Report 23482689 (Version 1)
Quarter: 2024Q1

REPORT INFORMATION
  Report Type: Report from Study
  Country: JP (occurrence: None)
  Receive Date: 20240205
  Receipt Date: 20240205
  Transmission Date: 20240410
  Serious: Yes (Death)
  Sender: FDA-Public Use
  Company Number: 2024A021881

PATIENT
  Age: 62 Year
  Sex: Female
  Weight: 51 kg

DRUGS (17)
  1. EVUSHELD [Suspect]
     Active Substance: CILGAVIMAB\TIXAGEVIMAB
     Indication: COVID-19 prophylaxis
     Route: 030
     Dates: start: 20230929, end: 20230929
  2. CARBOPLATIN [Concomitant]
     Active Substance: CARBOPLATIN
     Indication: High-grade B-cell lymphoma
     Dosage: DOSE UNKNOWN
     Route: 065
     Dates: start: 20231026, end: 20231026
  3. GEMCITABINE [Concomitant]
     Active Substance: GEMCITABINE
     Indication: High-grade B-cell lymphoma
     Dosage: DOSE UNKNOWN
     Route: 065
     Dates: start: 20231026, end: 20231026
  4. DEXAMETHASONE SODIUM PHOSPHATE [Concomitant]
     Active Substance: DEXAMETHASONE PHOSPHATE\DEXAMETHASONE SODIUM PHOSPHATE
     Indication: High-grade B-cell lymphoma
     Dosage: DOSE UNKNOWN
     Route: 065
     Dates: start: 20231026, end: 20231027
  5. ALOXI [Concomitant]
     Active Substance: PALONOSETRON HYDROCHLORIDE
     Indication: Prophylaxis
     Dosage: DOSE UNKNOWN
     Route: 065
     Dates: start: 20231026, end: 20231026
  6. RITUXIMAB [Concomitant]
     Active Substance: RITUXIMAB
     Indication: High-grade B-cell lymphoma
     Dosage: DOSE UNKNOWN
     Route: 065
     Dates: start: 20231030, end: 20231030
  7. FILGRASTIM [Concomitant]
     Active Substance: FILGRASTIM
     Indication: Prophylaxis
     Dosage: DOSE UNKNOWN
     Route: 065
  8. PREGABALIN [Concomitant]
     Active Substance: PREGABALIN
     Indication: Neuralgia
     Dosage: DOSE UNKNOWN
     Route: 048
  9. METHYLCOBALAMIN [Concomitant]
     Active Substance: METHYLCOBALAMIN
     Indication: Neuralgia
     Dosage: DOSE UNKNOWN
     Route: 048
  10. ALENDRONATE [Concomitant]
     Active Substance: ALENDRONATE SODIUM
     Indication: Osteoporosis
     Dosage: DOSE UNKNOWN
     Route: 048
  11. ZOLPIDEM TARTRATE [Concomitant]
     Active Substance: ZOLPIDEM TARTRATE
     Indication: Insomnia
     Dosage: DOSE UNKNOWN
     Route: 048
  12. LEVETIRACETAM [Concomitant]
     Active Substance: LEVETIRACETAM
     Indication: Epilepsy
     Dosage: DOSE UNKNOWN
     Route: 048
  13. BETAMETHASONE [Concomitant]
     Active Substance: BETAMETHASONE\BETAMETHASONE DIPROPIONATE
     Indication: High-grade B-cell lymphoma
     Dosage: DOSE UNKNOWN
     Route: 048
  14. CEPHALEXIN [Concomitant]
     Active Substance: CEPHALEXIN
     Indication: Prophylaxis
     Dosage: DOSE UNKNOWN
     Route: 048
  15. ACYCLOVIR [Concomitant]
     Active Substance: ACYCLOVIR
     Indication: Prophylaxis
     Dosage: DOSE UNKNOWN
     Route: 048
  16. SULFAMETHOXAZOLE\TRIMETHOPRIM [Concomitant]
     Active Substance: SULFAMETHOXAZOLE\TRIMETHOPRIM
     Indication: Prophylaxis
     Dosage: DOSE UNKNOWN
     Route: 048
  17. ESOMEPRAZOLE [Concomitant]
     Active Substance: ESOMEPRAZOLE
     Indication: Gastric ulcer
     Dosage: DOSE UNKNOWN
     Route: 048

REACTIONS (1)
  - High-grade B-cell lymphoma [Fatal]
